FAERS Safety Report 16282843 (Version 1)
Quarter: 2019Q2

REPORT INFORMATION
  Report Type: Spontaneous
  Country: JP (occurrence: JP)
  Receive Date: 20190507
  Receipt Date: 20190507
  Transmission Date: 20190711
  Serious: Yes (Death)
  Sender: FDA-Public Use
  Company Number: JP-CELGENEUS-JPN-20190502001

PATIENT
  Age: 71 Year
  Sex: Female

DRUGS (3)
  1. REVLIMID [Suspect]
     Active Substance: LENALIDOMIDE
     Indication: AMYLOIDOSIS
     Dosage: UNKNOWN
     Route: 048
     Dates: start: 20190326, end: 20190402
  2. VELCADE [Suspect]
     Active Substance: BORTEZOMIB
     Indication: AMYLOIDOSIS
     Dosage: UNKNOWN
     Route: 065
     Dates: start: 20190326, end: 2019
  3. LENADEX [Suspect]
     Active Substance: DEXAMETHASONE ACETATE
     Indication: AMYLOIDOSIS
     Dosage: UNKNOWN
     Route: 048
     Dates: start: 20190326, end: 20190402

REACTIONS (1)
  - Cardiac amyloidosis [Fatal]

NARRATIVE: CASE EVENT DATE: 20190402
